FAERS Safety Report 9716838 (Version 1)
Quarter: 2013Q4

REPORT INFORMATION
  Report Type: Spontaneous
  Country: US (occurrence: US)
  Receive Date: 20131127
  Receipt Date: 20131127
  Transmission Date: 20140711
  Serious: Yes (Other)
  Sender: FDA-Public Use
  Company Number: US-BAYER-2013-143937

PATIENT
  Age: 15 Year
  Sex: Female

DRUGS (12)
  1. YAZ [Suspect]
  2. DIFFERIN [Concomitant]
     Dosage: 0.1 %, UNK
     Route: 061
     Dates: start: 20131104
  3. DUAC [Concomitant]
     Dosage: 0.5 UNK, UNK
     Route: 061
     Dates: start: 20111105
  4. ENDOCET [Concomitant]
     Dosage: UNK
     Route: 048
     Dates: start: 20111117
  5. PROMETHAZINE [Concomitant]
     Dosage: 25 MG, UNK
     Route: 048
  6. TRAMADOL [Concomitant]
     Dosage: 50 MG, UNK
     Route: 048
  7. PENTAZOCINE HYDROCHLORIDE W/APAP [Concomitant]
  8. CLARINEX [DESLORATADINE] [Concomitant]
  9. BENTYL [Concomitant]
  10. PREVACID [Concomitant]
  11. PRILOSEC [Concomitant]
  12. CARAFATE [Concomitant]

REACTIONS (1)
  - Cholecystitis [None]
